FAERS Safety Report 9479391 (Version 2)
Quarter: 2014Q1

REPORT INFORMATION
  Report Type: Spontaneous
  Country: US (occurrence: US)
  Receive Date: 20130827
  Receipt Date: 20140221
  Transmission Date: 20141002
  Serious: No
  Sender: FDA-Public Use
  Company Number: US-PFIZER INC-2013244208

PATIENT
  Age: 36 Year
  Sex: Female

DRUGS (1)
  1. ELLENCE [Suspect]
     Indication: GASTRIC CANCER
     Dosage: 50 MG, UNK
     Dates: start: 20130402, end: 20130719

REACTIONS (2)
  - Disease progression [Unknown]
  - Gastric cancer [Unknown]
